FAERS Safety Report 17580607 (Version 1)
Quarter: 2020Q1

REPORT INFORMATION
  Report Type: Spontaneous
  Country: BR (occurrence: BR)
  Receive Date: 20200325
  Receipt Date: 20200325
  Transmission Date: 20200409
  Serious: Yes (Life-Threatening, Hospitalization)
  Sender: FDA-Public Use
  Company Number: BR-TORRENT-00005270

PATIENT
  Sex: Female

DRUGS (1)
  1. LAMITOR CD [Suspect]
     Active Substance: LAMOTRIGINE
     Indication: PRODUCT USED FOR UNKNOWN INDICATION
     Dosage: ONE TABLET EVERY 12 HOURS
     Route: 048

REACTIONS (9)
  - Nausea [Unknown]
  - Laryngeal oedema [Unknown]
  - Headache [Unknown]
  - Vomiting [Unknown]
  - Oxygen saturation decreased [Unknown]
  - Hypersensitivity [Unknown]
  - Pyrexia [Recovered/Resolved]
  - Rash [Unknown]
  - Anaphylactic shock [Unknown]
